FAERS Safety Report 19214559 (Version 2)
Quarter: 2021Q2

REPORT INFORMATION
  Report Type: Report from Study
  Country: TH (occurrence: TH)
  Receive Date: 20210504
  Receipt Date: 20210518
  Transmission Date: 20210717
  Serious: Yes (Hospitalization)
  Sender: FDA-Public Use
  Company Number: TH-SEAGEN-2020SGN05157

PATIENT
  Age: 17 Year
  Sex: Female

DRUGS (1)
  1. BRENTUXIMAB VEDOTIN [Suspect]
     Active Substance: BRENTUXIMAB VEDOTIN
     Indication: HODGKIN^S DISEASE REFRACTORY
     Dosage: 50 MILLIGRAM, Q3WEEKS
     Route: 042
     Dates: start: 20201111

REACTIONS (3)
  - Product administered to patient of inappropriate age [Unknown]
  - Herpes zoster [Unknown]
  - Anaemia [Unknown]

NARRATIVE: CASE EVENT DATE: 20210422
